FAERS Safety Report 7806769 (Version 8)
Quarter: 2013Q2

REPORT INFORMATION
  Report Type: Report from Study
  Country: US (occurrence: US)
  Receive Date: 20110210
  Receipt Date: 20130426
  Transmission Date: 20140414
  Serious: Yes (Hospitalization)
  Sender: FDA-Public Use
  Company Number: US-JNJFOC-20110202036

PATIENT
  Age: 12 Year
  Sex: Male
  Weight: 77.2 kg

DRUGS (16)
  1. REMICADE [Suspect]
     Indication: INFLAMMATORY BOWEL DISEASE
     Route: 042
     Dates: start: 200812, end: 20090130
  2. CIMZIA [Concomitant]
     Indication: INFLAMMATORY BOWEL DISEASE
     Dates: start: 20100826
  3. CIMZIA [Concomitant]
     Indication: INFLAMMATORY BOWEL DISEASE
     Dates: start: 20091106
  4. 5-ASA [Concomitant]
  5. HYDROCORTISONE [Concomitant]
  6. PREDNISONE [Concomitant]
  7. ANTIBIOTICS [Concomitant]
     Indication: INFLAMMATORY BOWEL DISEASE
  8. DILAUDID [Concomitant]
  9. VICODIN [Concomitant]
     Dosage: 5/500 MG
  10. MULTIVITAMINS [Concomitant]
  11. OSCAL D [Concomitant]
  12. PEPCID [Concomitant]
  13. IRON SUPPLEMENT [Concomitant]
  14. LIALDA [Concomitant]
     Route: 048
  15. IMURAN [Concomitant]
  16. AZATHIOPRINE [Concomitant]

REACTIONS (2)
  - Inflammatory bowel disease [Recovered/Resolved]
  - Colitis ulcerative [Recovered/Resolved]
